FAERS Safety Report 16013821 (Version 2)
Quarter: 2019Q1

REPORT INFORMATION
  Report Type: Spontaneous
  Country: FR (occurrence: FR)
  Receive Date: 20190227
  Receipt Date: 20190320
  Transmission Date: 20190418
  Serious: Yes (Other)
  Sender: FDA-Public Use
  Company Number: FR-ASTRAZENECA-2019SE29538

PATIENT
  Age: 71 Year
  Sex: Female

DRUGS (9)
  1. DURVALUMAB. [Suspect]
     Active Substance: DURVALUMAB
     Indication: ACUTE MYELOID LEUKAEMIA
     Dosage: INCONNUE
     Route: 042
     Dates: start: 20170918, end: 201712
  2. EXJADE [Concomitant]
     Active Substance: DEFERASIROX
     Indication: TRANSFUSION
     Dosage: INCONNUE
     Route: 048
     Dates: start: 201701
  3. EFFEXOR [Concomitant]
     Active Substance: VENLAFAXINE HYDROCHLORIDE
     Indication: DEPRESSION
     Route: 048
  4. LEVOTHYROX [Concomitant]
     Active Substance: LEVOTHYROXINE
     Indication: THYROIDECTOMY
     Route: 048
  5. VIDAZA [Suspect]
     Active Substance: AZACITIDINE
     Indication: ACUTE MYELOID LEUKAEMIA
     Dosage: INCONNUE
     Route: 042
     Dates: start: 20170918, end: 20180720
  6. ARANESP [Concomitant]
     Active Substance: DARBEPOETIN ALFA
     Indication: ACUTE MYELOID LEUKAEMIA
     Route: 058
     Dates: start: 201511
  7. REVLIMID [Suspect]
     Active Substance: LENALIDOMIDE
     Indication: ACUTE MYELOID LEUKAEMIA
     Dosage: INCONNUE
     Route: 048
     Dates: start: 201707, end: 201709
  8. KARDEGIC [Concomitant]
     Active Substance: ASPIRIN DL-LYSINE
     Indication: THROMBOCYTOSIS
     Route: 048
     Dates: start: 201511
  9. HYDREA [Suspect]
     Active Substance: HYDROXYUREA
     Indication: ACUTE MYELOID LEUKAEMIA
     Route: 048
     Dates: start: 201511, end: 201706

REACTIONS (2)
  - Progressive multifocal leukoencephalopathy [Not Recovered/Not Resolved]
  - Product use in unapproved indication [Unknown]

NARRATIVE: CASE EVENT DATE: 201806
